FAERS Safety Report 7336055-4 (Version None)
Quarter: 2011Q1

REPORT INFORMATION
  Report Type: 
  Country: None (occurrence: None)
  Receive Date: 20110307
  Receipt Date: 20110302
  Transmission Date: 20110831
  Serious: Yes (Death)
  Sender: FDA-Public Use
  Company Number: US-ABBOTT-11P-163-0709275-00

PATIENT
  Sex: Male

DRUGS (4)
  1. CHOLESTYRAMINE [Concomitant]
     Indication: BOWEL MOVEMENT IRREGULARITY
  2. HUMIRA [Suspect]
     Indication: CROHN'S DISEASE
     Dosage: 160 MG LOADING DOSE
     Dates: start: 20110115, end: 20110115
  3. COUMADIN [Concomitant]
     Indication: DEEP VEIN THROMBOSIS
  4. PENTASA [Concomitant]
     Indication: PRODUCT USED FOR UNKNOWN INDICATION

REACTIONS (3)
  - INTESTINAL ISCHAEMIA [None]
  - SEPSIS [None]
  - THROMBOSIS [None]
